FAERS Safety Report 13068428 (Version 2)
Quarter: 2017Q1

REPORT INFORMATION
  Report Type: Spontaneous
  Country: AU (occurrence: AU)
  Receive Date: 20161228
  Receipt Date: 20170109
  Transmission Date: 20170428
  Serious: Yes (Other)
  Sender: FDA-Public Use
  Company Number: AU-ABBVIE-16P-008-1823089-00

PATIENT
  Age: 24 Year
  Sex: Female

DRUGS (4)
  1. TOPAMAX [Suspect]
     Active Substance: TOPIRAMATE
     Indication: FRONTAL LOBE EPILEPSY
     Route: 065
  2. TOPAMAX [Suspect]
     Active Substance: TOPIRAMATE
     Route: 065
  3. VALPROIC ACID. [Suspect]
     Active Substance: VALPROIC ACID
     Indication: FRONTAL LOBE EPILEPSY
     Route: 065
  4. VALPROIC ACID. [Suspect]
     Active Substance: VALPROIC ACID
     Route: 065

REACTIONS (8)
  - Hypercalcaemia [Recovered/Resolved]
  - Aura [Recovered/Resolved]
  - Syncope [Recovered/Resolved]
  - Epilepsy [Recovered/Resolved]
  - Vasoconstriction [Recovered/Resolved]
  - Myoclonic epilepsy [Recovered/Resolved]
  - Urinary incontinence [Recovered/Resolved]
  - Vitamin D decreased [Recovered/Resolved]
